FAERS Safety Report 8952475 (Version 1)
Quarter: 2012Q4

REPORT INFORMATION
  Report Type: 
  Country: JP (occurrence: JP)
  Receive Date: 20121205
  Receipt Date: 20121205
  Transmission Date: 20130627
  Serious: Yes (Hospitalization)
  Sender: FDA-Public Use
  Company Number: JP-009507513-2012SP015621

PATIENT
  Age: 67 Year
  Sex: Female
  Weight: 53 kg

DRUGS (13)
  1. PEGINTERFERON ALFA-2B [Suspect]
     Indication: CHRONIC HEPATITIS C
     Dosage: 1.5 Microgram per kilogram, QW
     Route: 058
     Dates: start: 20111209, end: 20120309
  2. PEGINTERFERON ALFA-2B [Suspect]
     Dosage: 1.5 Microgram per kilogram, qw
     Route: 058
     Dates: start: 20120316, end: 20120511
  3. PEGINTERFERON ALFA-2B [Suspect]
     Dosage: 1.2 Microgram per kilogram, qw
     Route: 058
     Dates: start: 20120518
  4. REBETOL [Suspect]
     Indication: CHRONIC HEPATITIS C
     Dosage: 600 mg, QD
     Route: 048
     Dates: start: 20111209, end: 20120216
  5. REBETOL [Suspect]
     Dosage: 400 mg, QD
     Route: 048
     Dates: start: 20120217, end: 20120223
  6. REBETOL [Suspect]
     Dosage: 200 mg, QD
     Route: 048
     Dates: start: 20120224, end: 20120309
  7. REBETOL [Suspect]
     Dosage: 200 mg, QD
     Route: 048
     Dates: start: 20120319, end: 20120329
  8. REBETOL [Suspect]
     Dosage: 400 mg, QD
     Route: 048
     Dates: start: 20120330, end: 20120426
  9. REBETOL [Suspect]
     Dosage: 600 mg, QD
     Route: 048
     Dates: start: 20120427
  10. TELAVIC [Suspect]
     Indication: CHRONIC HEPATITIS C
     Dosage: 1500 mg, QD
     Route: 048
     Dates: start: 20111209, end: 20120302
  11. HERBESSER R [Concomitant]
     Dosage: 100 mg, QD
     Route: 048
     Dates: start: 20100219
  12. MAINTATE [Concomitant]
     Dosage: FORMULATION: POR
     Route: 048
     Dates: start: 20100219
  13. DEPAS [Concomitant]
     Dosage: FORMULATION: POR
     Route: 048
     Dates: start: 20100219

REACTIONS (1)
  - Anaemia [Recovering/Resolving]
